FAERS Safety Report 6898769-X (Version None)
Quarter: 2010Q3

REPORT INFORMATION
  Report Type: 
  Country: None (occurrence: None)
  Receive Date: 20100802
  Receipt Date: 20071128
  Transmission Date: 20110219
  Serious: Yes (Other)
  Sender: FDA-Public Use
  Company Number: US-PFIZER INC-2007099754

PATIENT
  Sex: Female
  Weight: 100 kg

DRUGS (2)
  1. LYRICA [Suspect]
     Indication: ARTHRITIS
     Route: 048
     Dates: start: 20070901, end: 20071101
  2. VALSARTAN [Concomitant]

REACTIONS (6)
  - BALANCE DISORDER [None]
  - BLEPHAROSPASM [None]
  - DIZZINESS [None]
  - GAIT DISTURBANCE [None]
  - SOMNOLENCE [None]
  - VISION BLURRED [None]
